FAERS Safety Report 7774700-X (Version None)
Quarter: 2011Q3

REPORT INFORMATION
  Report Type: 
  Country: None (occurrence: None)
  Receive Date: 20110923
  Receipt Date: 20110914
  Transmission Date: 20111222
  Serious: No
  Sender: FDA-Public Use
  Company Number: US-JNJFOC-20110907101

PATIENT
  Sex: Male
  Weight: 99.79 kg

DRUGS (4)
  1. DURAGESIC-100 [Suspect]
     Indication: ROTATOR CUFF SYNDROME
     Dosage: HERNIATED DISCS IN NECK, BACK AND L ROTARY CUFF
     Route: 062
     Dates: start: 20110601
  2. DURAGESIC-100 [Suspect]
     Indication: INTERVERTEBRAL DISC PROTRUSION
     Dosage: HERNIATED DISCS IN NECK, BACK AND L ROTARY CUFF
     Route: 062
     Dates: start: 20110601
  3. ALLERGY MEDICATION [Concomitant]
     Indication: MULTIPLE ALLERGIES
     Dosage: UNSPECIFIED OVER THE COUNTER MEDICATION
     Route: 048
  4. PROTONIX [Concomitant]
     Indication: GASTROOESOPHAGEAL REFLUX DISEASE
     Route: 048

REACTIONS (4)
  - PRODUCT QUALITY ISSUE [None]
  - VOMITING [None]
  - WRONG TECHNIQUE IN DRUG USAGE PROCESS [None]
  - HEADACHE [None]
